FAERS Safety Report 12970753 (Version 1)
Quarter: 2016Q4

REPORT INFORMATION
  Report Type: Spontaneous
  Country: ES (occurrence: ES)
  Receive Date: 20161123
  Receipt Date: 20161123
  Transmission Date: 20170207
  Serious: Yes (Hospitalization, Other)
  Sender: FDA-Public Use
  Company Number: ES-ALEXION-A201609172

PATIENT
  Age: 66 Year
  Sex: Female

DRUGS (4)
  1. SOLIRIS [Suspect]
     Active Substance: ECULIZUMAB
     Indication: HAEMOLYTIC URAEMIC SYNDROME
     Dosage: 900 MG, QW
     Route: 042
  2. SOLIRIS [Suspect]
     Active Substance: ECULIZUMAB
     Dosage: 1200 MG, EVERY 15DAYS
     Route: 042
  3. SOLIRIS [Suspect]
     Active Substance: ECULIZUMAB
     Dosage: 1200 MG, EVERY 15DAYS
     Route: 042
  4. SOLIRIS [Suspect]
     Active Substance: ECULIZUMAB
     Dosage: 1500 MG, EVERY 15DAYS
     Route: 042

REACTIONS (9)
  - Dyspnoea [Unknown]
  - Haemodynamic instability [Unknown]
  - Cytomegalovirus viraemia [Unknown]
  - Therapeutic response decreased [Unknown]
  - Polymerase chain reaction [Unknown]
  - Platelet count decreased [Recovering/Resolving]
  - Blood lactate dehydrogenase increased [Recovering/Resolving]
  - Pulmonary oedema [Unknown]
  - Incorrect dose administered [Recovered/Resolved]
